FAERS Safety Report 9203267 (Version 1)
Quarter: 2013Q1

REPORT INFORMATION
  Report Type: Spontaneous
  Country: JP (occurrence: None)
  Receive Date: 20130327
  Receipt Date: 20130327
  Transmission Date: 20140127
  Serious: Yes (Hospitalization)
  Sender: FDA-Public Use
  Company Number: 2012-01778

PATIENT
  Age: 67 Year
  Sex: Female

DRUGS (3)
  1. LAMOTRIGINE [Suspect]
     Indication: DEPRESSION
     Dosage: 1 IN 2 DAY (25 MG, 2 D), UNKOWN
  2. RISPERIDONE (UNKNOWN) (RISPERIDONE) [Suspect]
  3. BIPERIDEN [Suspect]

REACTIONS (1)
  - Neuroleptic malignant syndrome [None]
